FAERS Safety Report 7801475-8 (Version None)
Quarter: 2011Q4

REPORT INFORMATION
  Report Type: 
  Country: None (occurrence: None)
  Receive Date: 20111007
  Receipt Date: 20110927
  Transmission Date: 20120403
  Serious: Yes (Death, Hospitalization)
  Sender: FDA-Public Use
  Company Number: GB-JNJFOC-20110807201

PATIENT
  Sex: Female

DRUGS (1)
  1. ABIRATERONE ACETATE [Suspect]
     Indication: BREAST CANCER METASTATIC
     Route: 048
     Dates: end: 20110714

REACTIONS (2)
  - BREAST CANCER METASTATIC [None]
  - BLOOD BILIRUBIN INCREASED [None]
